FAERS Safety Report 5075600-9 (Version None)
Quarter: 2006Q3

REPORT INFORMATION
  Report Type: 
  Country: None (occurrence: None)
  Receive Date: 20060809
  Receipt Date: 20060724
  Transmission Date: 20061208
  Serious: Yes (Life-Threatening)
  Sender: FDA-Public Use
  Company Number: JP-AVENTIS-200612340JP

PATIENT
  Age: 55 Year
  Sex: Female
  Weight: 65 kg

DRUGS (13)
  1. ARAVA [Suspect]
     Indication: RHEUMATOID ARTHRITIS
     Route: 048
     Dates: start: 20030926, end: 20030928
  2. ARAVA [Suspect]
     Route: 048
     Dates: start: 20030929, end: 20031023
  3. ARAVA [Suspect]
     Route: 048
     Dates: start: 20031024, end: 20040213
  4. ARAVA [Suspect]
     Route: 048
     Dates: start: 20040214, end: 20041025
  5. FOSAMAC TABLETS [Suspect]
     Indication: OSTEOPOROSIS
     Route: 048
     Dates: start: 20011012, end: 20050421
  6. MUCOSTA [Concomitant]
     Indication: GASTRITIS
     Route: 048
     Dates: start: 20000609
  7. MUCOSTA [Concomitant]
     Indication: PROPHYLAXIS
     Route: 048
     Dates: start: 20000609
  8. VOLTAREN [Concomitant]
     Indication: ANTIINFLAMMATORY THERAPY
     Route: 048
     Dates: start: 20000609
  9. VOLTAREN [Concomitant]
     Indication: PAIN
     Route: 048
     Dates: start: 20000609
  10. RHEUMATREX [Concomitant]
     Indication: RHEUMATOID ARTHRITIS
     Route: 048
     Dates: end: 20030925
  11. RIMATIL [Concomitant]
     Indication: RHEUMATOID ARTHRITIS
     Route: 048
     Dates: end: 20030925
  12. SHIOSOL [Concomitant]
     Indication: RHEUMATOID ARTHRITIS
     Route: 048
     Dates: end: 20030925
  13. MEDROL [Concomitant]
     Indication: ANTIINFLAMMATORY THERAPY
     Route: 048
     Dates: start: 20000928

REACTIONS (7)
  - BLOOD ALKALINE PHOSPHATASE INCREASED [None]
  - BLOOD LACTATE DEHYDROGENASE INCREASED [None]
  - MALIGNANT ASCITES [None]
  - NEUTROPHIL PERCENTAGE INCREASED [None]
  - OVARIAN CANCER [None]
  - PLATELET COUNT INCREASED [None]
  - WHITE BLOOD CELL COUNT INCREASED [None]
